FAERS Safety Report 25193604 (Version 1)
Quarter: 2025Q2

REPORT INFORMATION
  Report Type: Report from Study
  Country: ZA (occurrence: ZA)
  Receive Date: 20250414
  Receipt Date: 20250414
  Transmission Date: 20250717
  Serious: Yes (Hospitalization)
  Sender: ABBVIE
  Company Number: ZA-ABBVIE-6223919

PATIENT
  Sex: Male

DRUGS (2)
  1. OZURDEX [Suspect]
     Active Substance: DEXAMETHASONE
     Indication: Disorder of globe
     Route: 050
     Dates: start: 20240823
  2. OZURDEX [Suspect]
     Active Substance: DEXAMETHASONE
     Indication: Macular degeneration

REACTIONS (1)
  - Renal failure [Unknown]
